FAERS Safety Report 14141596 (Version 1)
Quarter: 2017Q4

REPORT INFORMATION
  Report Type: Spontaneous
  Country: US (occurrence: US)
  Receive Date: 20171029
  Receipt Date: 20171029
  Transmission Date: 20180321
  Serious: Yes (Hospitalization)
  Sender: FDA-Public Use
  Company Number: None

PATIENT
  Age: 8 Month
  Sex: Male
  Weight: 76.5 kg

DRUGS (1)
  1. GADOLINIUM [Suspect]
     Active Substance: GADOLINIUM
     Indication: MUSCULOSKELETAL PAIN
     Dates: start: 20171019

REACTIONS (3)
  - Dizziness [None]
  - Syncope [None]
  - Urine analysis abnormal [None]

NARRATIVE: CASE EVENT DATE: 19721020
